FAERS Safety Report 5159605-5 (Version None)
Quarter: 2006Q4

REPORT INFORMATION
  Report Type: 
  Country: None (occurrence: None)
  Receive Date: 20061129
  Receipt Date: 20061121
  Transmission Date: 20070319
  Serious: Yes (Death, Life-Threatening)
  Sender: FDA-Public Use
  Company Number: FR-JNJFOC-20061104891

PATIENT
  Age: 54 Year
  Sex: Male

DRUGS (5)
  1. HALDOL [Suspect]
     Indication: DRUG USE FOR UNKNOWN INDICATION
     Route: 030
  2. LEPTICUR [Suspect]
     Indication: DRUG USE FOR UNKNOWN INDICATION
     Route: 048
  3. THERALENE [Suspect]
     Indication: DRUG USE FOR UNKNOWN INDICATION
     Route: 048
  4. ZYPREXA [Suspect]
     Indication: DRUG USE FOR UNKNOWN INDICATION
     Route: 048
  5. DEPAKENE [Suspect]
     Indication: DRUG USE FOR UNKNOWN INDICATION
     Route: 048

REACTIONS (14)
  - ALANINE AMINOTRANSFERASE INCREASED [None]
  - ASPARTATE AMINOTRANSFERASE INCREASED [None]
  - BLOOD CREATINE INCREASED [None]
  - BLOOD CREATINE PHOSPHOKINASE INCREASED [None]
  - BLOOD UREA INCREASED [None]
  - DEHYDRATION [None]
  - FALL [None]
  - HEART RATE ABNORMAL [None]
  - HYPOTENSION [None]
  - MOUTH INJURY [None]
  - PLATELET COUNT DECREASED [None]
  - PROTHROMBIN TIME PROLONGED [None]
  - PYREXIA [None]
  - TACHYCARDIA [None]
